FAERS Safety Report 14363004 (Version 3)
Quarter: 2018Q1

REPORT INFORMATION
  Report Type: Spontaneous
  Country: FR (occurrence: FR)
  Receive Date: 20180108
  Receipt Date: 20180205
  Transmission Date: 20180509
  Serious: Yes (Life-Threatening, Hospitalization)
  Sender: FDA-Public Use
  Company Number: FR-PFIZER INC-2017556112

PATIENT
  Age: 63 Year
  Sex: Male

DRUGS (3)
  1. ZOPICLONE [Suspect]
     Active Substance: ZOPICLONE
     Dosage: 2 DF, UNK
     Route: 048
  2. THERALENE [Suspect]
     Active Substance: TRIMEPRAZINE
     Dosage: 2 DF, UNK
     Route: 048
  3. ALPRAZOLAM. [Suspect]
     Active Substance: ALPRAZOLAM
     Dosage: 1 MG, SINGLE
     Route: 048

REACTIONS (4)
  - Intentional overdose [Recovered/Resolved]
  - Somnolence [Recovered/Resolved]
  - Bradypnoea [Recovered/Resolved]
  - Alcohol poisoning [Recovered/Resolved]

NARRATIVE: CASE EVENT DATE: 20171123
